FAERS Safety Report 4809013-9 (Version None)
Quarter: 2005Q4

REPORT INFORMATION
  Report Type: 
  Country: None (occurrence: None)
  Receive Date: 20051021
  Receipt Date: 20040124
  Transmission Date: 20060501
  Serious: Yes (Death)
  Sender: FDA-Public Use
  Company Number: GBS040114315

PATIENT
  Age: 46 Year
  Sex: Female
  Weight: 53 kg

DRUGS (3)
  1. OLANZAPINE [Suspect]
     Dosage: 15 MG DAY
     Route: 048
     Dates: start: 20031215
  2. PAROXETINE HCL [Concomitant]
  3. ENSURE [Concomitant]

REACTIONS (3)
  - DEEP VEIN THROMBOSIS [None]
  - GENERAL PHYSICAL HEALTH DETERIORATION [None]
  - PULMONARY EMBOLISM [None]
